FAERS Safety Report 14798090 (Version 1)
Quarter: 2018Q2

REPORT INFORMATION
  Report Type: Report from Study
  Country: None (occurrence: US)
  Receive Date: 20180424
  Receipt Date: 20180424
  Transmission Date: 20180711
  Serious: Yes (Other)
  Sender: FDA-Public Use
  Company Number: US-ABBVIE-17K-163-2156952-00

PATIENT
  Sex: Male

DRUGS (3)
  1. HUMIRA [Suspect]
     Active Substance: ADALIMUMAB
     Indication: PSORIASIS
     Dosage: DAY 1
     Route: 058
     Dates: start: 20170414, end: 20170414
  2. HUMIRA [Suspect]
     Active Substance: ADALIMUMAB
     Indication: PSORIATIC ARTHROPATHY
     Route: 058
     Dates: start: 201704, end: 20180323
  3. HUMIRA [Suspect]
     Active Substance: ADALIMUMAB
     Route: 058
     Dates: start: 20180410

REACTIONS (10)
  - Nasal congestion [Unknown]
  - Incorrect dose administered [Unknown]
  - Hypersensitivity [Unknown]
  - Cough [Unknown]
  - Skin irritation [Recovering/Resolving]
  - Pruritus [Recovering/Resolving]
  - Emotional distress [Recovering/Resolving]
  - Trigger finger [Unknown]
  - Device issue [Unknown]
  - Psoriasis [Unknown]

NARRATIVE: CASE EVENT DATE: 2017
